FAERS Safety Report 19468388 (Version 1)
Quarter: 2021Q2

REPORT INFORMATION
  Report Type: Report from Study
  Country: GB (occurrence: GB)
  Receive Date: 20210628
  Receipt Date: 20210628
  Transmission Date: 20210717
  Serious: Yes (Other)
  Sender: FDA-Public Use
  Company Number: GB-MYLANLABS-2021M1026602

PATIENT
  Sex: Male

DRUGS (2)
  1. KALYDECO [Concomitant]
     Active Substance: IVACAFTOR
     Dosage: UNK
  2. TOBI PODHALER [Suspect]
     Active Substance: TOBRAMYCIN
     Indication: CYSTIC FIBROSIS
     Dosage: 28 MILLIGRAM, BID
     Dates: start: 2019

REACTIONS (3)
  - Productive cough [Unknown]
  - Lower respiratory tract infection [Unknown]
  - Asthenia [Unknown]
